FAERS Safety Report 8845157 (Version 2)
Quarter: 2013Q1

REPORT INFORMATION
  Report Type: Spontaneous
  Country: US (occurrence: US)
  Receive Date: 20121017
  Receipt Date: 20130218
  Transmission Date: 20140127
  Serious: No
  Sender: FDA-Public Use
  Company Number: US-PFIZER INC-2012255038

PATIENT
  Age: 72 Year
  Sex: Male
  Weight: 85.7 kg

DRUGS (16)
  1. SUTENT [Suspect]
     Indication: CLEAR CELL RENAL CELL CARCINOMA
     Dosage: 37.5 MG, 1X/DAY (TWO WEEKS ON ONE WEEK OFF)
     Route: 048
  2. NORVASC [Concomitant]
     Indication: HYPERTENSION
     Dosage: 5 MG, UNK
     Route: 048
  3. ISORBID [Concomitant]
     Indication: CARDIAC DISORDER
     Dosage: EXTENDED RELEASE 24 HR 60 MG
     Route: 048
  4. ATENOLOL [Concomitant]
     Indication: CARDIAC DISORDER
     Dosage: 100 MG, 1 TAB DAILY
     Route: 048
  5. ALPRAZOLAM [Concomitant]
     Dosage: 0.25 MG, 1 TAB AT BEDTIME
     Route: 048
  6. ASPIRIN [Concomitant]
     Dosage: 81 MG, 1X/DAY
     Route: 048
  7. CLOPIDOGREL BISULFATE [Concomitant]
     Dosage: 75 MG, 1X/DAY
     Route: 048
  8. FUROSEMIDE [Concomitant]
     Dosage: 20 MG, 1X/DAY
     Route: 048
  9. INSULIN GLARGINE [Concomitant]
     Dosage: 100/ML
     Route: 058
  10. LANTUS SOLOSTAR [Concomitant]
     Dosage: 100/ML (3) BEDTIME
  11. INSULIN [Concomitant]
     Dosage: 100/ML
  12. LOVASTATIN [Concomitant]
     Dosage: 40 MG, 1 TAB AT BEDTIME
     Route: 048
  13. OXYCODONE HYDROCHLORIDE W/PARACETAMOL [Concomitant]
     Dosage: 10MG-325MG 1 TAB
     Route: 048
  14. POTASSIUM CHLORIDE [Concomitant]
     Dosage: 10 MEQ
     Route: 048
  15. PREDNISONE [Concomitant]
     Indication: GOUT
     Dosage: 20 MG, 1X/DAY PRN
     Route: 048
  16. PROCHLORPERAZINE MALEATE [Concomitant]
     Dosage: 10 MG, UNK
     Route: 048

REACTIONS (7)
  - Fatigue [Unknown]
  - Asthenia [Unknown]
  - Nausea [Recovered/Resolved]
  - Vomiting [Recovered/Resolved]
  - Gout [Recovered/Resolved]
  - Diarrhoea [Unknown]
  - Blood thyroid stimulating hormone increased [Unknown]
